FAERS Safety Report 5266529-1 (Version None)
Quarter: 2007Q1

REPORT INFORMATION
  Report Type: 
  Country: None (occurrence: None)
  Receive Date: 20070315
  Receipt Date: 20070308
  Transmission Date: 20070707
  Serious: Yes (Hospitalization)
  Sender: FDA-Public Use
  Company Number: BR-ROXANE LABORATORIES, INC-2007-BP-03227RO

PATIENT
  Age: 45 Year
  Sex: Male

DRUGS (6)
  1. LITHIUM CARBONATE [Suspect]
     Indication: BIPOLAR I DISORDER
     Route: 048
  2. CHLORPROMAZINE [Suspect]
     Indication: BIPOLAR I DISORDER
     Route: 048
  3. CHLORPROMAZINE [Suspect]
     Route: 048
     Dates: start: 20030901
  4. CARBAMAZEPINE [Suspect]
     Indication: BIPOLAR I DISORDER
     Route: 048
  5. VALPROATE SODIUM [Suspect]
     Indication: BIPOLAR I DISORDER
     Route: 048
  6. HALOPERIDOL [Suspect]
     Indication: BIPOLAR I DISORDER
     Route: 048

REACTIONS (1)
  - NO THERAPEUTIC RESPONSE [None]
